FAERS Safety Report 10874093 (Version 3)
Quarter: 2015Q2

REPORT INFORMATION
  Report Type: Spontaneous
  Country: GB (occurrence: GB)
  Receive Date: 20150227
  Receipt Date: 20150428
  Transmission Date: 20150821
  Serious: Yes (Other)
  Sender: FDA-Public Use
  Company Number: GB-PFIZER INC-2015069157

PATIENT
  Age: 3 Month
  Sex: Male

DRUGS (14)
  1. DEXAMETHASONE. [Suspect]
     Active Substance: DEXAMETHASONE
     Dosage: 0.25 MG, 1X/DAY
     Route: 048
     Dates: start: 20150124
  2. RANITIDINE [Concomitant]
     Active Substance: RANITIDINE\RANITIDINE HYDROCHLORIDE
     Dosage: 4.7 MG, 3X/DAY
     Route: 048
     Dates: start: 20141218, end: 20150115
  3. RANITIDINE [Concomitant]
     Active Substance: RANITIDINE\RANITIDINE HYDROCHLORIDE
     Dosage: 11.8 MG, 3X/DAY
     Route: 048
     Dates: start: 20150116
  4. FUROSEMIDE. [Suspect]
     Active Substance: FUROSEMIDE
     Dosage: 3 MG, 2X/DAY
     Route: 048
     Dates: start: 20141224, end: 20150115
  5. FUROSEMIDE. [Suspect]
     Active Substance: FUROSEMIDE
     Dosage: 3.9 MG, 2X/DAY
     Route: 048
     Dates: start: 20150116
  6. SPIRONOLACTONE. [Suspect]
     Active Substance: SPIRONOLACTONE
     Dosage: 4.1 MG, 2X/DAY
     Route: 048
     Dates: start: 20150202
  7. DEXAMETHASONE. [Suspect]
     Active Substance: DEXAMETHASONE
     Dosage: 0.9 MG, 2X/DAY
     Route: 048
     Dates: start: 20150115, end: 20150117
  8. ACETAMINOPHEN. [Concomitant]
     Active Substance: ACETAMINOPHEN
     Dosage: 50 MG, AS NEEDED 4 TO 6 HOURLY WHEN REQUIRED
     Route: 048
     Dates: start: 20141229, end: 20150209
  9. SPIRONOLACTONE. [Suspect]
     Active Substance: SPIRONOLACTONE
     Dosage: 3.3 MG, 2X/DAY
     Route: 048
     Dates: start: 20141225, end: 20150115
  10. SPIRONOLACTONE. [Suspect]
     Active Substance: SPIRONOLACTONE
     Dosage: 3.9 MG, 2X/DAY
     Route: 048
     Dates: start: 20150116, end: 20150201
  11. CHLOROTHIAZIDE. [Suspect]
     Active Substance: CHLOROTHIAZIDE
     Dosage: TO CONTINUE ON DISCHARGE.
     Route: 048
     Dates: start: 20150202
  12. LACTULOSE. [Concomitant]
     Active Substance: LACTULOSE
     Dosage: 1 ML, 3X/DAY TO CONTINUE ON DISCHARGE.
     Route: 048
     Dates: start: 20141219
  13. DEXAMETHASONE. [Suspect]
     Active Substance: DEXAMETHASONE
     Dosage: 0.45 MG, 2X/DAY
     Route: 048
     Dates: start: 20150117, end: 20150120
  14. DEXAMETHASONE. [Suspect]
     Active Substance: DEXAMETHASONE
     Dosage: 0.25 MG, 2X/DAY
     Route: 048
     Dates: start: 20150121, end: 20150123

REACTIONS (1)
  - Rib fracture [Recovering/Resolving]

NARRATIVE: CASE EVENT DATE: 201502
